FAERS Safety Report 14934482 (Version 3)
Quarter: 2018Q2

REPORT INFORMATION
  Report Type: Spontaneous
  Country: US (occurrence: US)
  Receive Date: 20180524
  Receipt Date: 20180531
  Transmission Date: 20180711
  Serious: Yes (Death)
  Sender: FDA-Public Use
  Company Number: US-PFIZER INC-2018213516

PATIENT
  Age: 33 Year
  Sex: Male
  Weight: 99.79 kg

DRUGS (2)
  1. PHENYTOIN SODIUM. [Suspect]
     Active Substance: PHENYTOIN SODIUM
     Indication: EPILEPSY
     Dosage: UNK
     Dates: start: 20180117
  2. DILANTIN [Suspect]
     Active Substance: PHENYTOIN
     Indication: EPILEPSY
     Dosage: 300 MG, 2X/DAY (THREE-100 MG CAPSULES BY MOUTH TWICE A DAY)
     Route: 048
     Dates: start: 20170316

REACTIONS (3)
  - Drug level decreased [Unknown]
  - Obesity [Fatal]
  - Epilepsy [Fatal]

NARRATIVE: CASE EVENT DATE: 2018
